FAERS Safety Report 9141051 (Version 2)
Quarter: 2013Q1

REPORT INFORMATION
  Report Type: Spontaneous
  Country: DE (occurrence: DE)
  Receive Date: 20130305
  Receipt Date: 20130308
  Transmission Date: 20140127
  Serious: Yes (Other)
  Sender: FDA-Public Use
  Company Number: DE-BAXTER-2013BAX008173

PATIENT
  Age: 60 Year
  Sex: Male

DRUGS (1)
  1. ADVATE  250 I.E. [Suspect]
     Indication: FACTOR VIII DEFICIENCY
     Dosage: TOTAL 25 LIFETIME EXPOSURE DAYS
     Dates: start: 201101

REACTIONS (3)
  - Factor VIII inhibition [Recovered/Resolved]
  - Traumatic haematoma [Recovered/Resolved]
  - Muscle haemorrhage [Recovered/Resolved]
